FAERS Safety Report 8462896-6 (Version None)
Quarter: 2012Q2

REPORT INFORMATION
  Report Type: 
  Country: None (occurrence: None)
  Receive Date: 20120625
  Receipt Date: 20120615
  Transmission Date: 20120825
  Serious: No
  Sender: FDA-Public Use
  Company Number: US-PFIZER INC-2012145059

PATIENT
  Sex: Female
  Weight: 83.9 kg

DRUGS (5)
  1. DIFLUCAN [Suspect]
     Indication: ACUTE PULMONARY HISTOPLASMOSIS
     Dosage: UNK, DAILY
     Dates: start: 20120101, end: 20120101
  2. VFEND [Suspect]
     Indication: ACUTE PULMONARY HISTOPLASMOSIS
     Dosage: 1 MG, 2X/DAY
     Dates: start: 20120101
  3. LOVASTATIN [Concomitant]
     Indication: CARDIAC FAILURE CONGESTIVE
     Dosage: 10 MG, DAILY
  4. LISINOPRIL [Concomitant]
     Indication: HYPERTENSION
     Dosage: 20 MG, DAILY
  5. HUMALOG [Concomitant]
     Indication: DIABETES MELLITUS
     Dosage: 90 UNITS, DAILY

REACTIONS (3)
  - WEIGHT INCREASED [None]
  - DRUG EFFECT DECREASED [None]
  - BLISTER [None]
